FAERS Safety Report 7717012-2 (Version None)
Quarter: 2011Q3

REPORT INFORMATION
  Report Type: 
  Country: None (occurrence: None)
  Receive Date: 20110829
  Receipt Date: 20110819
  Transmission Date: 20111222
  Serious: Yes (Hospitalization)
  Sender: FDA-Public Use
  Company Number: JP-NOVOPROD-329363

PATIENT

DRUGS (12)
  1. VICTOZA [Suspect]
     Indication: TYPE 2 DIABETES MELLITUS
     Dosage: 0.3 MG, QD
     Route: 058
     Dates: start: 20110601, end: 20110603
  2. ALLOPURINOL [Concomitant]
     Dosage: 100 MG, QD
     Route: 048
  3. OMEPRAZOLE [Concomitant]
     Dosage: 20 MG, QD
     Route: 048
  4. METFORMIN HCL [Concomitant]
     Indication: TYPE 2 DIABETES MELLITUS
     Dosage: 750 MG, QD
     Route: 048
  5. SELBEX [Concomitant]
     Dosage: 150 MG, QD
     Route: 048
  6. LASIX [Concomitant]
     Dosage: 20 MG, QD
     Route: 048
  7. AMARYL [Concomitant]
     Indication: TYPE 2 DIABETES MELLITUS
     Dosage: 4 MG, QD
     Route: 048
  8. OLMESARTAN MEDOXOMIL [Concomitant]
     Dosage: 20 MG, QD
     Route: 048
  9. CALBLOCK [Concomitant]
     Dosage: 16 MG, QD
     Route: 048
  10. DOXAZOSIN MESYLATE [Concomitant]
     Dosage: 12 MG, QD
     Route: 048
  11. AMARYL [Concomitant]
     Dosage: 1 MG, QD
     Route: 048
  12. CRESTOR [Concomitant]
     Dosage: 2.5 MG, QD
     Route: 048

REACTIONS (1)
  - CEREBRAL INFARCTION [None]
